FAERS Safety Report 8879027 (Version 1)
Quarter: 2012Q4

REPORT INFORMATION
  Report Type: Spontaneous
  Country: US (occurrence: None)
  Receive Date: 20121031
  Receipt Date: 20121031
  Transmission Date: 20130627
  Serious: No
  Sender: FDA-Public Use
  Company Number: None

PATIENT
  Age: 57 Year
  Sex: Male
  Weight: 108.86 kg

DRUGS (1)
  1. VICTRELIS [Suspect]
     Indication: HEPATITIS
     Dosage: 4 every 8 hrs po
     Route: 048
     Dates: start: 20120928, end: 20121026

REACTIONS (1)
  - Choking [None]
